FAERS Safety Report 8812279 (Version 1)
Quarter: 2012Q4

REPORT INFORMATION
  Report Type: 
  Country: US (occurrence: US)
  Receive Date: 20120927
  Receipt Date: 20120927
  Transmission Date: 20130627
  Serious: Yes (Other)
  Sender: FDA-Public Use
  Company Number: US-ROCHE-1104190

PATIENT
  Sex: Male

DRUGS (4)
  1. AVASTIN [Suspect]
     Indication: MALIGNANT PERITONEAL NEOPLASM
     Route: 065
     Dates: start: 20060815
  2. CAMPTOSAR [Concomitant]
  3. LEUCOVORIN [Concomitant]
  4. 5-FU [Concomitant]

REACTIONS (5)
  - Haemorrhagic ascites [Unknown]
  - Gastrointestinal disorder [Unknown]
  - Weight decreased [Unknown]
  - Decreased appetite [Unknown]
  - Metastatic neoplasm [Unknown]
